FAERS Safety Report 6584887-2 (Version None)
Quarter: 2010Q1

REPORT INFORMATION
  Report Type: 
  Country: None (occurrence: None)
  Receive Date: 20100217
  Receipt Date: 20091216
  Transmission Date: 20100710
  Serious: Yes (Other)
  Sender: FDA-Public Use
  Company Number: JP-SANOFI-AVENTIS-F01200700858

PATIENT
  Age: 78 Year
  Sex: Female
  Weight: 52.6 kg

DRUGS (4)
  1. CLOPIDOGREL BISULFATE [Suspect]
     Dosage: UNIT DOSE: 50 MG
     Route: 048
     Dates: start: 20070306
  2. HEPARIN SODIUM [Concomitant]
     Indication: ANTIPLATELET THERAPY
     Dosage: DOSE TEXT: 10000 UNITS
     Route: 042
     Dates: start: 20070304, end: 20070306
  3. LIPITOR [Concomitant]
     Route: 048
     Dates: start: 20070303
  4. TAKEPRON [Concomitant]
     Route: 048
     Dates: start: 20070303

REACTIONS (2)
  - GASTROENTERITIS [None]
  - HYPERTENSION [None]
